FAERS Safety Report 5904989-0 (Version None)
Quarter: 2008Q4

REPORT INFORMATION
  Report Type: 
  Country: None (occurrence: None)
  Receive Date: 20081001
  Receipt Date: 20080925
  Transmission Date: 20090506
  Serious: Yes (Death)
  Sender: FDA-Public Use
  Company Number: FR-SANOFI-SYNTHELABO-F01200801440

PATIENT
  Sex: Male
  Weight: 91 kg

DRUGS (9)
  1. ANTIEMETICS NOS [Concomitant]
     Indication: PROPHYLAXIS
     Route: 065
  2. FLUOROURACIL [Suspect]
     Dosage: (4752 MG TOTAL DOSE GIVEN OVER 46 HOURS)
     Route: 042
     Dates: start: 20080610, end: 20080611
  3. DOCETAXEL [Suspect]
     Dosage: (99 MG TOTAL DOSE)
     Route: 042
     Dates: start: 20080610, end: 20080610
  4. TARDYFERON [Concomitant]
     Route: 065
  5. LASIX [Concomitant]
     Route: 065
  6. ACETAMINOPHEN [Concomitant]
     Dosage: UNK
     Route: 065
  7. LOGIMAX [Concomitant]
     Indication: HYPERTENSION
     Dosage: UNK
     Route: 065
  8. OGASTRO [Concomitant]
     Dosage: UNK
     Route: 065
  9. OXALIPLATIN [Suspect]
     Indication: GASTRIC CANCER
     Dosage: (169 TOTAL DOSE)
     Route: 042
     Dates: start: 20080610, end: 20080610

REACTIONS (1)
  - GENERALISED OEDEMA [None]
